FAERS Safety Report 4966711-4 (Version None)
Quarter: 2006Q1

REPORT INFORMATION
  Report Type: 
  Country: None (occurrence: None)
  Receive Date: 20060201
  Receipt Date: 20051207
  Transmission Date: 20060701
  Serious: No
  Sender: FDA-Public Use
  Company Number: 2005PV005529

PATIENT
  Age: 74 Year
  Sex: Male
  Weight: 95.2554 kg

DRUGS (2)
  1. BYETTA [Suspect]
     Indication: DIABETES MELLITUS NON-INSULIN-DEPENDENT
     Dosage: 5 MCG;BID;SC
     Route: 058
     Dates: start: 20051128
  2. NIASPAN ER [Suspect]
     Dosage: 2000 MG;HS;PO, 4000 MG;X1;PO
     Route: 048
     Dates: start: 20051205, end: 20051205

REACTIONS (1)
  - URTICARIA [None]
